FAERS Safety Report 21523028 (Version 1)
Quarter: 2022Q4

REPORT INFORMATION
  Report Type: Spontaneous
  Country: US (occurrence: US)
  Receive Date: 20221029
  Receipt Date: 20221029
  Transmission Date: 20230113
  Serious: Yes (Death, Other)
  Sender: FDA-Public Use
  Company Number: US-Shilpa Medicare Limited-SML-US-2022-01376

PATIENT
  Age: 66 Year
  Sex: Male

DRUGS (4)
  1. GEMCITABINE [Suspect]
     Active Substance: GEMCITABINE
     Indication: Bladder transitional cell carcinoma
     Dosage: 2 CYCLES
  2. CARBOPLATIN [Suspect]
     Active Substance: CARBOPLATIN
     Indication: Bladder transitional cell carcinoma
     Dosage: 2 CYCLES
  3. DOXORUBICIN [Suspect]
     Active Substance: DOXORUBICIN
     Indication: Bladder transitional cell carcinoma
     Dosage: 1CYCLE
  4. PEMBROLIZUMAB [Suspect]
     Active Substance: PEMBROLIZUMAB
     Indication: Bladder transitional cell carcinoma
     Dosage: 1 CYCLE

REACTIONS (2)
  - Disease progression [Fatal]
  - Drug ineffective [Unknown]
